FAERS Safety Report 7449113-0 (Version None)
Quarter: 2011Q2

REPORT INFORMATION
  Report Type: 
  Country: None (occurrence: None)
  Receive Date: 20110502
  Receipt Date: 20101221
  Transmission Date: 20111010
  Serious: No
  Sender: FDA-Public Use
  Company Number: US-BAYER-2011-010451

PATIENT
  Sex: Male
  Weight: 91 kg

DRUGS (2)
  1. ALEVE (CAPLET) [Suspect]
     Indication: ARTHRALGIA
     Dosage: 1 DF, QD, BOTTLE COUNT 150S
     Route: 048
     Dates: start: 20100101
  2. SIMVASTATIN [Concomitant]

REACTIONS (1)
  - NO ADVERSE EVENT [None]
